FAERS Safety Report 7313836-4 (Version None)
Quarter: 2011Q1

REPORT INFORMATION
  Report Type: 
  Country: None (occurrence: None)
  Receive Date: 20110225
  Receipt Date: 20110215
  Transmission Date: 20110831
  Serious: Yes (Hospitalization, Other)
  Sender: FDA-Public Use
  Company Number: ES-SANOFI-AVENTIS-2011SA005017

PATIENT
  Sex: Male
  Weight: 82 kg

DRUGS (10)
  1. HYDROCHLOROTHIAZIDE [Concomitant]
     Dates: start: 20100601
  2. RANITIDINE [Concomitant]
  3. ALLOPURINOL [Concomitant]
  4. HEMOVAS [Concomitant]
  5. FUROSEMIDE [Concomitant]
  6. MULTAQ [Suspect]
     Indication: ATRIAL FIBRILLATION
     Route: 048
     Dates: start: 20101005, end: 20110120
  7. LOBIVON [Concomitant]
     Indication: ISCHAEMIC CARDIOMYOPATHY
     Dates: start: 20080101
  8. ATORVASTATIN [Concomitant]
  9. SPIRONOLACTONE [Concomitant]
     Dates: start: 20100601
  10. SINTROM [Concomitant]
     Indication: ATRIAL FIBRILLATION
     Dates: start: 20100601

REACTIONS (5)
  - HEPATITIS [None]
  - DISCOMFORT [None]
  - HEPATOCELLULAR INJURY [None]
  - ASTHENIA [None]
  - NAUSEA [None]
